FAERS Safety Report 4810428-3 (Version None)
Quarter: 2005Q4

REPORT INFORMATION
  Report Type: 
  Country: None (occurrence: None)
  Receive Date: 20051024
  Receipt Date: 20051014
  Transmission Date: 20060501
  Serious: Yes (Hospitalization, Other)
  Sender: FDA-Public Use
  Company Number: KII-2005-0019046

PATIENT
  Age: 30 Year
  Sex: Female

DRUGS (9)
  1. OXYCODONE HCL [Suspect]
     Dosage: ORAL
     Route: 048
  2. PROPOXYPHENE HCL AND ACETAMINOPHEN [Suspect]
     Dosage: ORAL
     Route: 048
  3. PHENCYCLIDINE (PHENCYCLIDINE) [Suspect]
  4. TRICYCLIC ANTIDEPRESSANTS (TRICYCLIC ANITDEPRESSANTS) [Suspect]
  5. LORAZEPAM [Suspect]
  6. TRAZODONE HCL [Suspect]
  7. SSRI (SSRI) [Suspect]
  8. DICLOFENAC (DICLOFENAC) [Suspect]
  9. METHADONE HCL [Suspect]

REACTIONS (10)
  - ASTHENIA [None]
  - BLOOD CREATININE INCREASED [None]
  - BLOOD UREA INCREASED [None]
  - FLAT AFFECT [None]
  - HEPATIC ENZYME INCREASED [None]
  - MIOSIS [None]
  - MULTIPLE DRUG OVERDOSE [None]
  - PROTHROMBIN TIME ABNORMAL [None]
  - SOCIAL AVOIDANT BEHAVIOUR [None]
  - SOMNOLENCE [None]
